FAERS Safety Report 16741956 (Version 2)
Quarter: 2019Q3

REPORT INFORMATION
  Report Type: Spontaneous
  Country: US (occurrence: US)
  Receive Date: 20190826
  Receipt Date: 20190923
  Transmission Date: 20191005
  Serious: Yes (Hospitalization)
  Sender: FDA-Public Use
  Company Number: US-ALNYLAM PHARMACEUTICALS, INC.-ALN-2019-000457

PATIENT
  Age: 40 Year
  Sex: Female

DRUGS (1)
  1. ONPATTRO [Suspect]
     Active Substance: PATISIRAN SODIUM
     Indication: HEREDITARY NEUROPATHIC AMYLOIDOSIS
     Dosage: UNK
     Route: 042
     Dates: start: 20181130

REACTIONS (8)
  - Vertigo [Unknown]
  - Syncope [Unknown]
  - Malaise [Unknown]
  - Autonomic nervous system imbalance [Unknown]
  - Cardiovascular examination [Unknown]
  - Dizziness [Unknown]
  - Weight decreased [Unknown]
  - Heart rate abnormal [Unknown]

NARRATIVE: CASE EVENT DATE: 201908
